FAERS Safety Report 8608596-0 (Version None)
Quarter: 2012Q3

REPORT INFORMATION
  Report Type: 
  Country: None (occurrence: None)
  Receive Date: 20120806
  Receipt Date: 20120724
  Transmission Date: 20120928
  Serious: Yes (Other)
  Sender: FDA-Public Use
  Company Number: DSA_58464_2012

PATIENT
  Age: 60 Year
  Sex: Male

DRUGS (8)
  1. FLUOROURACIL [Suspect]
     Indication: OESOPHAGEAL SQUAMOUS CELL CARCINOMA STAGE II
     Dosage: (350 MG/M2)
     Dates: start: 20101001
  2. FLUOROURACIL [Suspect]
     Indication: GASTRIC CANCER STAGE I
     Dosage: (350 MG/M2)
     Dates: start: 20101001
  3. THERAPEUTIC RADIOPHARMACEUTICALS (THERAPEUTIC RADIOPHARMACEUTICALS) [Suspect]
     Indication: OESOPHAGEAL SQUAMOUS CELL CARCINOMA STAGE II
     Dosage: (60 GY)
     Dates: start: 20101001
  4. THERAPEUTIC RADIOPHARMACEUTICALS (THERAPEUTIC RADIOPHARMACEUTICALS) [Suspect]
     Indication: GASTRIC CANCER STAGE I
     Dosage: (60 GY)
     Dates: start: 20101001
  5. TAXOTERE [Suspect]
     Indication: OESOPHAGEAL SQUAMOUS CELL CARCINOMA STAGE II
     Dosage: (60 MG/M2; EVERY THREE WEEKS)
     Dates: start: 20101001
  6. TAXOTERE [Suspect]
     Indication: GASTRIC CANCER STAGE I
     Dosage: (60 MG/M2; EVERY THREE WEEKS)
     Dates: start: 20101001
  7. CISPLATIN [Suspect]
     Indication: GASTRIC CANCER STAGE I
     Dosage: (6 MG/M2)
     Dates: start: 20101001
  8. CISPLATIN [Suspect]
     Indication: OESOPHAGEAL SQUAMOUS CELL CARCINOMA STAGE III
     Dosage: (6 MG/M2)
     Dates: start: 20101001

REACTIONS (3)
  - DYSPHAGIA [None]
  - FLUID INTAKE REDUCED [None]
  - OESOPHAGEAL STENOSIS [None]
